FAERS Safety Report 10486892 (Version 1)
Quarter: 2014Q4

REPORT INFORMATION
  Report Type: Spontaneous
  Country: US (occurrence: US)
  Receive Date: 20141001
  Receipt Date: 20141001
  Transmission Date: 20150528
  Serious: No
  Sender: FDA-Public Use
  Company Number: US-BAYER-2014-144452

PATIENT
  Age: 62 Year
  Sex: Female

DRUGS (2)
  1. GADAVIST [Suspect]
     Active Substance: GADOBUTROL
     Indication: NUCLEAR MAGNETIC RESONANCE IMAGING
     Dosage: 8 ML, ONCE
     Dates: start: 20140925, end: 20140925
  2. GADAVIST [Suspect]
     Active Substance: GADOBUTROL
     Indication: CHEST WALL MASS

REACTIONS (5)
  - Urticaria [None]
  - Pruritus generalised [None]
  - Off label use [None]
  - Eye pruritus [None]
  - Oral discomfort [None]

NARRATIVE: CASE EVENT DATE: 20140925
